FAERS Safety Report 20483922 (Version 1)
Quarter: 2022Q1

REPORT INFORMATION
  Report Type: Spontaneous
  Country: FR (occurrence: FR)
  Receive Date: 20220217
  Receipt Date: 20220217
  Transmission Date: 20220423
  Serious: Yes (Other)
  Sender: FDA-Public Use
  Company Number: FR-BRISTOL-MYERS SQUIBB COMPANY-BMS-2022-022955

PATIENT
  Age: 65 Year

DRUGS (1)
  1. ELIQUIS [Suspect]
     Active Substance: APIXABAN
     Indication: Pulmonary embolism
     Dosage: 10 MILLIGRAM, BID
     Route: 065

REACTIONS (1)
  - Cerebral haemorrhage [Unknown]
